FAERS Safety Report 4479156-0 (Version None)
Quarter: 2004Q3

REPORT INFORMATION
  Report Type: 
  Country: None (occurrence: None)
  Receive Date: 20040923
  Receipt Date: 20040707
  Transmission Date: 20050211
  Serious: Yes (Other)
  Sender: FDA-Public Use
  Company Number: 207670

PATIENT
  Age: 52 Year
  Sex: Female

DRUGS (13)
  1. AVASTIN [Suspect]
     Indication: RENAL CELL CARCINOMA STAGE UNSPECIFIED
     Dosage: Q2W, INTRAVENOUS
     Route: 042
     Dates: start: 20040501, end: 20040701
  2. CORTEF [Concomitant]
  3. FLORINEF [Concomitant]
  4. PROZAC [Concomitant]
  5. NEXIUM [Concomitant]
  6. PROCRIT (EPOETIN ALFA) [Concomitant]
  7. HYDROMORPHONE (HYDROMORPHONE HYDROCHLORIDE) [Concomitant]
  8. MORPHINE SULFATE [Concomitant]
  9. CALCIUM CHLORIDE (CALCIUM CHLORIDE) [Concomitant]
  10. CIPROFLOXACIN [Concomitant]
  11. MIRTAZAPINE [Concomitant]
  12. ISOSORBIDE MONONITRATE [Concomitant]
  13. CREON 10 (PANCREATIN) [Concomitant]

REACTIONS (1)
  - CARDIAC FAILURE CONGESTIVE [None]
